FAERS Safety Report 7732314-1 (Version None)
Quarter: 2011Q3

REPORT INFORMATION
  Report Type: 
  Country: None (occurrence: None)
  Receive Date: 20110906
  Receipt Date: 20110826
  Transmission Date: 20111222
  Serious: No
  Sender: FDA-Public Use
  Company Number: US-AMGEN-USASP2011043841

PATIENT
  Age: 78 Year
  Sex: Female

DRUGS (3)
  1. VITAMIN D [Concomitant]
     Dosage: 1 UNK, QD
  2. PROLIA [Suspect]
     Indication: OSTEOPOROSIS POSTMENOPAUSAL
     Dosage: 60 MG, Q6MO
     Dates: start: 20110401
  3. CALCIUM CARBONATE [Concomitant]

REACTIONS (1)
  - MYALGIA [None]
